FAERS Safety Report 8506038-7 (Version None)
Quarter: 2012Q3

REPORT INFORMATION
  Report Type: 
  Country: None (occurrence: None)
  Receive Date: 20120712
  Receipt Date: 20120709
  Transmission Date: 20120928
  Serious: Yes (Other)
  Sender: FDA-Public Use
  Company Number: PL-ROCHE-1005561

PATIENT
  Sex: Female
  Weight: 61 kg

DRUGS (8)
  1. ISONIAZID [Suspect]
     Indication: ANTIBIOTIC PROPHYLAXIS
  2. PREDNISONE [Concomitant]
     Indication: RHEUMATOID ARTHRITIS
     Route: 048
  3. ACTEMRA [Suspect]
     Dates: start: 20110803
  4. ACTEMRA [Suspect]
     Dates: start: 20110902, end: 20120627
  5. DIAPREL MR [Concomitant]
     Indication: DIABETES MELLITUS
     Route: 048
  6. POLPRAZOL [Concomitant]
     Indication: PEPTIC ULCER
     Route: 048
  7. ENARENAL [Concomitant]
     Indication: HYPERTENSION
     Route: 048
  8. ACTEMRA [Suspect]
     Indication: RHEUMATOID ARTHRITIS
     Route: 042
     Dates: start: 20110704, end: 20120104

REACTIONS (3)
  - LEUKOPENIA [None]
  - ANAEMIA [None]
  - NEUTROPENIA [None]
